FAERS Safety Report 11411957 (Version 1)
Quarter: 2015Q3

REPORT INFORMATION
  Report Type: Spontaneous
  Country: FR (occurrence: FR)
  Receive Date: 20150824
  Receipt Date: 20150824
  Transmission Date: 20151125
  Serious: Yes (Hospitalization, Other)
  Sender: FDA-Public Use
  Company Number: FR-ELI_LILLY_AND_COMPANY-FR201508002890

PATIENT
  Sex: Female

DRUGS (12)
  1. ALIMTA [Suspect]
     Active Substance: PEMETREXED DISODIUM
     Indication: LUNG CANCER METASTATIC
     Dosage: UNK, UNKNOWN
     Route: 042
     Dates: end: 20150423
  2. CARBOPLATINE [Suspect]
     Active Substance: CARBOPLATIN
     Indication: LUNG CANCER METASTATIC
     Dosage: UNK, UNKNOWN
     Route: 042
     Dates: end: 20150423
  3. PREDNISOLONE. [Concomitant]
     Active Substance: PREDNISOLONE
     Dosage: 80 MG, UNKNOWN
     Route: 065
  4. VERSATIS [Concomitant]
     Active Substance: LIDOCAINE
     Dosage: UNK, UNKNOWN
     Route: 065
  5. GRANOCYTE [Concomitant]
     Active Substance: LENOGRASTIM
     Dosage: UNK, UNKNOWN
     Route: 065
  6. LANSOPRAZOLE. [Concomitant]
     Active Substance: LANSOPRAZOLE
     Dosage: 30 MG, QD
     Route: 065
  7. ALPRAZOLAM. [Concomitant]
     Active Substance: ALPRAZOLAM
     Indication: ANXIETY
     Dosage: 0.25 MG, PRN (3 TIMES A DAY IF ANXIETY)
     Route: 065
  8. FOLIC ACID. [Concomitant]
     Active Substance: FOLIC ACID
     Dosage: 0.4 MG, QD
     Route: 065
  9. METOCLOPRAMIDE. [Concomitant]
     Active Substance: METOCLOPRAMIDE
     Dosage: 10 MG, TID
     Route: 065
  10. PARACETAMOL [Concomitant]
     Active Substance: ACETAMINOPHEN
     Dosage: UNK, UNKNOWN
     Route: 065
  11. NEFOPAM [Concomitant]
     Active Substance: NEFOPAM
     Dosage: UNK, UNKNOWN
     Route: 065
  12. PREGABALINE [Concomitant]
     Active Substance: PREGABALIN
     Dosage: 75 MG, BID
     Route: 065

REACTIONS (3)
  - Pancytopenia [Recovered/Resolved]
  - Pneumonitis [Unknown]
  - Off label use [Recovered/Resolved]
